FAERS Safety Report 7147869-8 (Version None)
Quarter: 2010Q4

REPORT INFORMATION
  Report Type: 
  Country: None (occurrence: None)
  Receive Date: 20101207
  Receipt Date: 20101207
  Transmission Date: 20110411
  Serious: Yes (Hospitalization, Other)
  Sender: FDA-Public Use
  Company Number: None

PATIENT
  Sex: Female

DRUGS (2)
  1. IODIXANOL 320MG/ML GE HEALTHCARE [Suspect]
     Indication: COMPUTERISED TOMOGRAM
     Dosage: ONCE IV
     Route: 042
     Dates: start: 20100316
  2. HYDROMORPHONE HCL [Concomitant]

REACTIONS (3)
  - CONTRAST MEDIA REACTION [None]
  - ERYTHEMA [None]
  - PRURITUS [None]
